FAERS Safety Report 19398841 (Version 1)
Quarter: 2021Q2

REPORT INFORMATION
  Report Type: Spontaneous
  Country: US (occurrence: US)
  Receive Date: 20210610
  Receipt Date: 20210610
  Transmission Date: 20210717
  Serious: Yes (Death)
  Sender: FDA-Public Use
  Company Number: None

PATIENT
  Age: 74 Year
  Sex: Female
  Weight: 113.7 kg

DRUGS (1)
  1. METRONIDAZOLE. [Suspect]
     Active Substance: METRONIDAZOLE
     Indication: DIVERTICULITIS
     Route: 041
     Dates: start: 20210413, end: 20210413

REACTIONS (4)
  - Pulse absent [None]
  - Obstructive airways disorder [None]
  - Epiglottic oedema [None]
  - Cyanosis [None]

NARRATIVE: CASE EVENT DATE: 20210413
